FAERS Safety Report 10191134 (Version 1)
Quarter: 2014Q2

REPORT INFORMATION
  Report Type: Spontaneous
  Country: US (occurrence: None)
  Receive Date: 20140521
  Receipt Date: 20140521
  Transmission Date: 20141212
  Serious: Yes (Hospitalization)
  Sender: FDA-Public Use
  Company Number: None

PATIENT
  Age: 27 Year
  Sex: Female
  Weight: 78 kg

DRUGS (8)
  1. XOLAIR [Suspect]
     Indication: ASTHMA
     Route: 058
     Dates: start: 20140207, end: 20140503
  2. ALBUTEROL SULFATE (PROAIR HFA IN) [Concomitant]
  3. TRIAMCINOLONE (NASACORT AQ) [Concomitant]
  4. BUDESONIDE-FORMOTEROL (SYMBICORT) [Concomitant]
  5. MONTELUKAST (SINGULAIR) [Concomitant]
  6. RANITIDINE (ZANTAC) [Concomitant]
  7. CETIRIZINE HCL (ZYRTEC) [Concomitant]
  8. PREDNISONE (DELTASONE) [Concomitant]

REACTIONS (4)
  - Throat tightness [None]
  - Cough [None]
  - Wheezing [None]
  - Dyspnoea [None]
